FAERS Safety Report 8103893-X (Version None)
Quarter: 2012Q1

REPORT INFORMATION
  Report Type: 
  Country: None (occurrence: None)
  Receive Date: 20120201
  Receipt Date: 20120126
  Transmission Date: 20120608
  Serious: Yes (Life-Threatening, Hospitalization, Other)
  Sender: FDA-Public Use
  Company Number: DE-PFIZER INC-DE-WYE-H09467409

PATIENT
  Age: 69 Year
  Sex: Female
  Weight: 60 kg

DRUGS (10)
  1. THEOPHYLLINE [Interacting]
     Indication: CHRONIC OBSTRUCTIVE PULMONARY DISEASE
     Dosage: 250 MG, 2X/DAY
     Route: 048
     Dates: start: 20050101
  2. CLOPIDOGREL BISULFATE [Concomitant]
     Dosage: UNK
     Route: 048
     Dates: start: 20090226, end: 20090315
  3. HALOPERIDOL [Suspect]
     Indication: RESTLESSNESS
     Dosage: 1.0 MG, 2X/DAY
     Route: 048
     Dates: start: 20070101, end: 20090313
  4. NEBIVOLOL [Concomitant]
     Dosage: UNK
     Route: 048
     Dates: start: 20000101
  5. PANTOPRAZOLE [Interacting]
     Dosage: 20.0 MG, 1X/DAY
     Route: 048
     Dates: start: 20080101
  6. RAMIPRIL [Interacting]
     Indication: HYPERTENSION
     Dosage: UNK
     Route: 048
     Dates: start: 20000101
  7. IBUPROFEN [Concomitant]
     Dosage: UNK
     Route: 048
     Dates: start: 20090226, end: 20090311
  8. ZOLPIDEM [Interacting]
     Indication: SLEEP DISORDER
     Dosage: 10.0 MG, 1X/DAY
     Route: 048
     Dates: start: 20060101, end: 20090313
  9. CALCIUM CARBONATE [Concomitant]
     Dosage: UNK
     Route: 048
     Dates: start: 20030101, end: 20090313
  10. ANALGIN [Concomitant]
     Dosage: UNK
     Route: 048
     Dates: start: 20090311, end: 20090313

REACTIONS (17)
  - VENTRICULAR TACHYCARDIA [None]
  - NAUSEA [None]
  - ELECTROCARDIOGRAM ST SEGMENT ELEVATION [None]
  - PALLOR [None]
  - ELECTROCARDIOGRAM ST SEGMENT DEPRESSION [None]
  - ANAEMIA [None]
  - RESTLESSNESS [None]
  - DYSPNOEA [None]
  - RHABDOMYOLYSIS [None]
  - DYSARTHRIA [None]
  - HYPONATRAEMIA [None]
  - PAIN [None]
  - DRUG INTERACTION [None]
  - FEELING HOT [None]
  - HYPERKINESIA [None]
  - COLD SWEAT [None]
  - SINUS TACHYCARDIA [None]
